FAERS Safety Report 5714463-2 (Version None)
Quarter: 2008Q2

REPORT INFORMATION
  Report Type: 
  Country: None (occurrence: None)
  Receive Date: 20080421
  Receipt Date: 20080413
  Transmission Date: 20081010
  Serious: Yes (Other)
  Sender: FDA-Public Use
  Company Number: 08H-107-0314154-00

PATIENT
  Age: 19 Year
  Sex: Male
  Weight: 63 kg

DRUGS (7)
  1. FENTANYL CITRATE [Suspect]
     Indication: INDUCTION OF ANAESTHESIA
     Dosage: 200 MCG, INTRAVENOUS
     Route: 042
  2. PROPOFOL [Suspect]
     Indication: INDUCTION OF ANAESTHESIA
     Dosage: 150 MG, INTRAVENOUS
     Route: 042
  3. ATROPINE [Concomitant]
  4. MIDAZOLAM HCL [Concomitant]
  5. ESMERON (ROCURONIUM BROMIDE) [Concomitant]
  6. FUROSEMIDE [Concomitant]
  7. METHYLPREDNISOLONE [Concomitant]

REACTIONS (2)
  - ANAPHYLACTIC SHOCK [None]
  - SKIN TEST POSITIVE [None]
